FAERS Safety Report 26021668 (Version 1)
Quarter: 2025Q4

REPORT INFORMATION
  Report Type: Report from Study
  Country: US (occurrence: US)
  Receive Date: 20251110
  Receipt Date: 20251110
  Transmission Date: 20260118
  Serious: No
  Sender: GRIFOLS
  Company Number: US-IGSA-BIG0039325

PATIENT
  Age: 23 Year
  Sex: Female

DRUGS (6)
  1. XEMBIFY [Suspect]
     Active Substance: HUMAN IMMUNOGLOBULIN G
     Indication: Immunodeficiency
     Dosage: 10 GRAM, Q.WK.
     Route: 058
     Dates: start: 202510
  2. XEMBIFY [Suspect]
     Active Substance: HUMAN IMMUNOGLOBULIN G
     Indication: Hypergammaglobulinaemia
     Dosage: 10 GRAM, Q.WK.
     Route: 058
     Dates: start: 202509
  3. BACLOFEN [Concomitant]
     Active Substance: BACLOFEN
  4. DULOXETINE HYDROCHLORIDE [Concomitant]
     Active Substance: DULOXETINE HYDROCHLORIDE
  5. LAMOTRIGINE [Concomitant]
     Active Substance: LAMOTRIGINE
  6. METHYLPREDNISOLONE [Concomitant]
     Active Substance: METHYLPREDNISOLONE

REACTIONS (3)
  - Erythema [Not Recovered/Not Resolved]
  - Inflammation [Not Recovered/Not Resolved]
  - Discharge [Not Recovered/Not Resolved]

NARRATIVE: CASE EVENT DATE: 20251001
